FAERS Safety Report 5084600-4 (Version None)
Quarter: 2006Q3

REPORT INFORMATION
  Report Type: 
  Country: None (occurrence: None)
  Receive Date: 20060821
  Receipt Date: 20060811
  Transmission Date: 20061208
  Serious: Yes (Hospitalization, Other)
  Sender: FDA-Public Use
  Company Number: 2006UW16088

PATIENT
  Age: 50 Year
  Sex: Female

DRUGS (7)
  1. SEROQUEL [Suspect]
     Route: 048
  2. METHADONE HCL [Interacting]
  3. METOPROLOL [Concomitant]
  4. VISTARIL [Concomitant]
  5. XANAX [Concomitant]
  6. ALTACE [Concomitant]
  7. MAGNESIUM CITRATE [Concomitant]

REACTIONS (6)
  - BLOOD ELECTROLYTES ABNORMAL [None]
  - CARDIAC ARREST [None]
  - DRUG INTERACTION [None]
  - ELECTROCARDIOGRAM QT PROLONGED [None]
  - HYPOTHYROIDISM [None]
  - TORSADE DE POINTES [None]
